FAERS Safety Report 8919541 (Version 1)
Quarter: 2012Q4

REPORT INFORMATION
  Report Type: 
  Country: US (occurrence: US)
  Receive Date: 20121121
  Receipt Date: 20121121
  Transmission Date: 20130627
  Serious: No
  Sender: FDA-Public Use
  Company Number: US-009507513-1211USA008140

PATIENT
  Age: 7 Year
  Sex: Male
  Weight: 27.21 kg

DRUGS (2)
  1. CLARITIN REDITABS [Suspect]
     Indication: HYPERSENSITIVITY
     Dosage: 10 mg, Once
     Route: 048
     Dates: start: 20120924
  2. CLARITIN REDITABS [Suspect]
     Dosage: 10 mg, Once
     Route: 048
     Dates: start: 20120924

REACTIONS (1)
  - Overdose [Recovering/Resolving]
